FAERS Safety Report 18047331 (Version 2)
Quarter: 2021Q1

REPORT INFORMATION
  Report Type: Spontaneous
  Country: ZA (occurrence: ZA)
  Receive Date: 20200721
  Receipt Date: 20210218
  Transmission Date: 20210419
  Serious: Yes (Hospitalization, Other)
  Sender: FDA-Public Use
  Company Number: ZA-LUPIN PHARMACEUTICALS INC.-2020-03456

PATIENT
  Sex: Male

DRUGS (4)
  1. ZARTAN TABLETS [Suspect]
     Active Substance: LOSARTAN POTASSIUM
     Indication: HYPERTENSION
     Dosage: 100 MILLIGRAM
     Route: 048
  2. NAVALPRO [Suspect]
     Active Substance: VALPROIC ACID
     Indication: DEPRESSION
     Dosage: 500 MILLIGRAM
     Route: 048
  3. MYLAN FUROSEMIDE [Suspect]
     Active Substance: FUROSEMIDE
     Indication: DIURETIC THERAPY
     Dosage: 40 MILLIGRAM
     Route: 048
  4. NAVALPRO [Suspect]
     Active Substance: VALPROIC ACID
     Dosage: 300 MILLIGRAM
     Route: 048

REACTIONS (1)
  - Cystitis [Unknown]
